FAERS Safety Report 13452109 (Version 3)
Quarter: 2017Q2

REPORT INFORMATION
  Report Type: Spontaneous
  Country: CA (occurrence: CA)
  Receive Date: 20170418
  Receipt Date: 20170505
  Transmission Date: 20170830
  Serious: Yes (Hospitalization, Other)
  Sender: FDA-Public Use
  Company Number: CA-SHIRE-CA201708415

PATIENT
  Sex: Male

DRUGS (2)
  1. INTUNIV [Suspect]
     Active Substance: GUANFACINE HYDROCHLORIDE
     Dosage: 1 MG, 2X/DAY:BID
     Route: 048
     Dates: start: 20170221, end: 20170327
  2. INTUNIV [Suspect]
     Active Substance: GUANFACINE HYDROCHLORIDE
     Indication: PRODUCT USED FOR UNKNOWN INDICATION
     Dosage: 2 MG, 2X/DAY:BID
     Route: 048
     Dates: start: 20170328

REACTIONS (6)
  - Inappropriate schedule of drug administration [Unknown]
  - Product contamination [Unknown]
  - Cardioactive drug level [Unknown]
  - Heart rate decreased [Unknown]
  - Somnolence [Unknown]
  - Chest pain [Unknown]

NARRATIVE: CASE EVENT DATE: 20170221
